FAERS Safety Report 6262884-4 (Version None)
Quarter: 2009Q3

REPORT INFORMATION
  Report Type: 
  Country: None (occurrence: None)
  Receive Date: 20090708
  Receipt Date: 20090624
  Transmission Date: 20100115
  Serious: Yes (Other)
  Sender: FDA-Public Use
  Company Number: IMP_04455_2009

PATIENT
  Age: 30 Year
  Sex: Female

DRUGS (1)
  1. MINOCYCLINE HCL [Suspect]
     Indication: ACNE
     Dosage: 100 MG, (CUMMULATIVE TOTAL DOSE OF 70G))

REACTIONS (3)
  - NODULE ON EXTREMITY [None]
  - POLYARTERITIS NODOSA [None]
  - SKIN HYPERPIGMENTATION [None]
